FAERS Safety Report 4519688-X (Version None)
Quarter: 2004Q4

REPORT INFORMATION
  Report Type: 
  Country: None (occurrence: None)
  Receive Date: 20041206
  Receipt Date: 20041116
  Transmission Date: 20050328
  Serious: Yes (Other)
  Sender: FDA-Public Use
  Company Number: PHNU2004DE03876

PATIENT
  Age: 74 Year
  Sex: Male

DRUGS (5)
  1. MORPHINE SULFATE [Concomitant]
  2. NEURONTIN [Concomitant]
  3. TETRA-SAAR [Concomitant]
  4. SAROTEN ^BAYER VITAL^ [Concomitant]
  5. LIORESAL [Suspect]
     Indication: MUSCLE SPASTICITY
     Dosage: 10MG/DAY
     Route: 048
     Dates: start: 20041112, end: 20041114

REACTIONS (4)
  - CEREBROVASCULAR ACCIDENT [None]
  - COMMUNICATION DISORDER [None]
  - DISTURBANCE IN ATTENTION [None]
  - SPEECH DISORDER [None]
